FAERS Safety Report 7914451-1 (Version None)
Quarter: 2011Q4

REPORT INFORMATION
  Report Type: 
  Country: None (occurrence: None)
  Receive Date: 20111115
  Receipt Date: 20111113
  Transmission Date: 20120403
  Serious: No
  Sender: FDA-Public Use
  Company Number: US-B.I. PHARMACEUTICALS,INC./RIDGEFIELD-2011-BP-26175BP

PATIENT
  Sex: Female

DRUGS (2)
  1. SPIRIVA [Suspect]
     Dosage: 18 MCG
     Route: 048
     Dates: start: 20111113, end: 20111113
  2. SPIRIVA [Suspect]
     Indication: DYSPNOEA
     Dates: start: 20110801

REACTIONS (1)
  - INCORRECT ROUTE OF DRUG ADMINISTRATION [None]
